FAERS Safety Report 10344267 (Version 2)
Quarter: 2015Q2

REPORT INFORMATION
  Report Type: Spontaneous
  Country: US (occurrence: US)
  Receive Date: 20140728
  Receipt Date: 20150626
  Transmission Date: 20150821
  Serious: Yes (Other)
  Sender: FDA-Public Use
  Company Number: US-UCBSA-2014006111

PATIENT

DRUGS (6)
  1. FOLIC ACID. [Concomitant]
     Active Substance: FOLIC ACID
     Dosage: EVERYDAY
  2. CIMZIA [Suspect]
     Active Substance: CERTOLIZUMAB PEGOL
     Dosage: 200 MG, EV 15 DAYS
  3. METHOTREXATE [Concomitant]
     Active Substance: METHOTREXATE
     Dosage: 15 UNK, WEEKLY (QW), AT TIMES 20 MG
  4. CORTISONE [Concomitant]
     Active Substance: CORTISONE\HYDROCORTISONE
     Dosage: 5 MG DAILY
  5. CALCIUM D3 [Concomitant]
     Active Substance: CALCIUM\CHOLECALCIFEROL
     Dosage: EVERYDAY
  6. CELEBREX [Concomitant]
     Active Substance: CELECOXIB
     Dosage: AS NECESSARY BEFORE SLEEP

REACTIONS (8)
  - Sjogren^s syndrome [Unknown]
  - Fatigue [Unknown]
  - Disturbance in attention [Unknown]
  - Arthralgia [Unknown]
  - Sleep apnoea syndrome [Unknown]
  - Pruritus [Unknown]
  - Insomnia [Unknown]
  - Dysstasia [Unknown]
